FAERS Safety Report 8546097-9 (Version None)
Quarter: 2012Q3

REPORT INFORMATION
  Report Type: 
  Country: None (occurrence: None)
  Receive Date: 20120727
  Receipt Date: 20120209
  Transmission Date: 20120928
  Serious: No
  Sender: FDA-Public Use
  Company Number: US-ASTRAZENECA-2011SE74473

PATIENT
  Age: 49 Year
  Sex: Female
  Weight: 56.2 kg

DRUGS (6)
  1. SEROQUEL XR [Suspect]
     Indication: DEPRESSION
     Route: 048
     Dates: start: 20060101
  2. ZOLOFT [Concomitant]
  3. PAXIL [Concomitant]
  4. SEROQUEL XR [Suspect]
     Dosage: TAKE ONE TABLET EVERY OTHER DAY
     Route: 048
  5. ADVAIR DISKUS 100/50 [Concomitant]
     Indication: DYSPNOEA
  6. PROZAC [Concomitant]

REACTIONS (7)
  - MOOD SWINGS [None]
  - OFF LABEL USE [None]
  - NIGHT SWEATS [None]
  - INSOMNIA [None]
  - DYSPNOEA [None]
  - CONSTIPATION [None]
  - HOT FLUSH [None]
